FAERS Safety Report 5729049-3 (Version None)
Quarter: 2008Q2

REPORT INFORMATION
  Report Type: 
  Country: None (occurrence: None)
  Receive Date: 20080505
  Receipt Date: 20080505
  Transmission Date: 20081010
  Serious: Yes (Other)
  Sender: FDA-Public Use
  Company Number: None

PATIENT
  Age: 37 Year
  Sex: Female
  Weight: 58.9676 kg

DRUGS (2)
  1. CARIMUNE [Suspect]
     Indication: MULTIPLE SCLEROSIS
     Dosage: 40GM 2 DAYS Q 4WKS IV
     Route: 042
     Dates: start: 20080422
  2. CARIMUNE [Suspect]

REACTIONS (4)
  - BODY TEMPERATURE INCREASED [None]
  - HEADACHE [None]
  - INFLUENZA LIKE ILLNESS [None]
  - PAIN [None]
